FAERS Safety Report 21012642 (Version 1)
Quarter: 2022Q2

REPORT INFORMATION
  Report Type: Spontaneous
  Country: US (occurrence: None)
  Receive Date: 20220626
  Receipt Date: 20220626
  Transmission Date: 20220721
  Serious: Yes (Life-Threatening, Hospitalization)
  Sender: FDA-Public Use
  Company Number: None

PATIENT
  Sex: Female

DRUGS (5)
  1. PACLITAXEL [Suspect]
     Active Substance: PACLITAXEL
     Indication: Breast cancer
     Dosage: 300 MG  EVERY 21 DAYS INTRAVENOUS DRIP?
     Route: 041
     Dates: start: 20220614, end: 20220614
  2. DEXAMETHASONE [Concomitant]
     Active Substance: DEXAMETHASONE
  3. APREPITANT [Concomitant]
     Active Substance: APREPITANT
  4. DIPHENHYDRAMINE [Concomitant]
     Active Substance: DIPHENHYDRAMINE
  5. FAMOTIDINE [Concomitant]
     Active Substance: FAMOTIDINE

REACTIONS (3)
  - Infusion related reaction [None]
  - Product quality issue [None]
  - Intensive care [None]

NARRATIVE: CASE EVENT DATE: 20220614
